FAERS Safety Report 26212169 (Version 1)
Quarter: 2025Q4

REPORT INFORMATION
  Report Type: Report from Study
  Country: US (occurrence: US)
  Receive Date: 20251230
  Receipt Date: 20251230
  Transmission Date: 20260117
  Serious: Yes (Death, Other)
  Sender: ABBVIE
  Company Number: US-JNJFOC-20250715408

PATIENT

DRUGS (2)
  1. IBRUTINIB [Suspect]
     Active Substance: IBRUTINIB
     Indication: Lymphocytic lymphoma
     Route: 048
  2. ACALABRUTINIB [Suspect]
     Active Substance: ACALABRUTINIB
     Indication: Lymphocytic lymphoma
     Route: 065

REACTIONS (9)
  - Cardiac disorder [Fatal]
  - Ventricular arrhythmia [Unknown]
  - Hypertension [Unknown]
  - Atrial fibrillation [Unknown]
  - Cardiac failure [Unknown]
  - Atrial flutter [Unknown]
  - Cardiomyopathy [Unknown]
  - Myocardial infarction [Unknown]
  - Conduction disorder [Unknown]
